FAERS Safety Report 24414838 (Version 1)
Quarter: 2024Q4

REPORT INFORMATION
  Report Type: Spontaneous
  Country: BR (occurrence: BR)
  Receive Date: 20241009
  Receipt Date: 20241009
  Transmission Date: 20250115
  Serious: Yes (Other)
  Sender: CELLTRION
  Company Number: BR-CELLTRION INC.-2023BR006946

PATIENT

DRUGS (2)
  1. INFLIXIMAB [Suspect]
     Active Substance: INFLIXIMAB
     Indication: Psoriasis
     Dosage: 2 AMPOULES, EVERY MONTH
     Route: 042
  2. INFLIXIMAB [Suspect]
     Active Substance: INFLIXIMAB
     Dosage: 2 AMPOULES, EVERY MONTH
     Route: 042
     Dates: start: 20240926

REACTIONS (3)
  - Syncope [Unknown]
  - Epilepsy [Unknown]
  - Off label use [Unknown]
